FAERS Safety Report 6055690-7 (Version None)
Quarter: 2009Q1

REPORT INFORMATION
  Report Type: 
  Country: None (occurrence: None)
  Receive Date: 20090128
  Receipt Date: 20090115
  Transmission Date: 20090719
  Serious: Yes (Other)
  Sender: FDA-Public Use
  Company Number: DE-ROCHE-595179

PATIENT
  Age: 60 Year
  Sex: Male
  Weight: 70 kg

DRUGS (2)
  1. XELODA [Suspect]
     Indication: COLORECTAL CANCER
     Route: 065
     Dates: start: 20081101
  2. AVASTIN [Suspect]
     Indication: COLORECTAL CANCER
     Route: 065
     Dates: start: 20081101

REACTIONS (4)
  - EMBOLISM [None]
  - FATIGUE [None]
  - LEFT VENTRICULAR DYSFUNCTION [None]
  - PULMONARY EMBOLISM [None]
